FAERS Safety Report 9097268 (Version 1)
Quarter: 2013Q1

REPORT INFORMATION
  Report Type: Spontaneous
  Country: DE (occurrence: DE)
  Receive Date: 20130212
  Receipt Date: 20130212
  Transmission Date: 20140127
  Serious: Yes (Other)
  Sender: FDA-Public Use
  Company Number: GXKR2013DE000809

PATIENT
  Age: 73 Year
  Sex: Male
  Weight: 76 kg

DRUGS (3)
  1. METOPROLOL [Suspect]
     Dosage: 50 MG, BID
     Route: 048
  2. TRIMIPRAMIN [Concomitant]
     Dosage: 25 MG, QD
     Route: 048
  3. GALANTAMINE [Concomitant]
     Indication: MEMORY IMPAIRMENT
     Dosage: 8 MG, QD

REACTIONS (2)
  - Suicidal ideation [Recovered/Resolved]
  - Confusional state [Recovered/Resolved]
